FAERS Safety Report 7361290-9 (Version None)
Quarter: 2011Q1

REPORT INFORMATION
  Report Type: 
  Country: None (occurrence: None)
  Receive Date: 20110318
  Receipt Date: 20110309
  Transmission Date: 20110831
  Serious: Yes (Other)
  Sender: FDA-Public Use
  Company Number: A0891308A

PATIENT
  Age: 65 Year
  Sex: Male

DRUGS (5)
  1. PROVENTIL [Concomitant]
  2. FLOVENT [Suspect]
     Route: 055
  3. PROLINE [Concomitant]
  4. VENTOLIN [Suspect]
     Indication: ASTHMA
     Dosage: 1PUFF THREE TIMES PER DAY
     Route: 055
     Dates: start: 19760101
  5. PREDNISONE TAB [Concomitant]

REACTIONS (3)
  - DRUG INEFFECTIVE [None]
  - ASTHMA [None]
  - PRODUCT QUALITY ISSUE [None]
